FAERS Safety Report 9528186 (Version 3)
Quarter: 2014Q1

REPORT INFORMATION
  Report Type: Spontaneous
  Country: BR (occurrence: BR)
  Receive Date: 20130917
  Receipt Date: 20140206
  Transmission Date: 20141002
  Serious: Yes (Other)
  Sender: FDA-Public Use
  Company Number: PHHY2013BR102631

PATIENT
  Sex: Female
  Weight: 69 kg

DRUGS (1)
  1. DIOVAN AMLO FIX [Suspect]
     Indication: HYPERTENSION
     Dosage: ONE TABLET PLUS A THIRD PART OF A TABLET AT NIGHT, (160MG VALS/ 10MG AMLO)
     Route: 048

REACTIONS (6)
  - Inhibitory drug interaction [Unknown]
  - Blood pressure increased [Recovered/Resolved]
  - Neck pain [Recovering/Resolving]
  - Hypoaesthesia [Recovering/Resolving]
  - Drug ineffective [Unknown]
  - Wrong technique in drug usage process [Unknown]
